FAERS Safety Report 13102038 (Version 1)
Quarter: 2017Q1

REPORT INFORMATION
  Report Type: Spontaneous
  Country: US (occurrence: US)
  Receive Date: 20170110
  Receipt Date: 20170110
  Transmission Date: 20170428
  Serious: Yes (Hospitalization)
  Sender: FDA-Public Use
  Company Number: US-INDIVIOR LIMITED-INDV-097609-2016

PATIENT
  Age: 59 Year
  Sex: Female

DRUGS (2)
  1. SUBOXONE [Suspect]
     Active Substance: BUPRENORPHINE HYDROCHLORIDE\NALOXONE HYDROCHLORIDE
     Dosage: SELF-TITRATING TO 2.5MG, DAILY BY CUTTING
     Route: 060
  2. SUBOXONE [Suspect]
     Active Substance: BUPRENORPHINE HYDROCHLORIDE\NALOXONE HYDROCHLORIDE
     Indication: DRUG DEPENDENCE
     Dosage: 4 MG DAILY
     Route: 060
     Dates: start: 2012

REACTIONS (10)
  - Vision blurred [Not Recovered/Not Resolved]
  - Euphoric mood [Unknown]
  - Incorrect dose administered [Unknown]
  - Intentional underdose [Unknown]
  - Product preparation error [Unknown]
  - Nausea [Unknown]
  - Hypoaesthesia [Unknown]
  - Hospitalisation [Not Recovered/Not Resolved]
  - Somnolence [Unknown]
  - Upper respiratory tract infection [Unknown]
